FAERS Safety Report 20027866 (Version 6)
Quarter: 2021Q4

REPORT INFORMATION
  Report Type: Report from Study
  Country: BR (occurrence: BR)
  Receive Date: 20211103
  Receipt Date: 20211230
  Transmission Date: 20220303
  Serious: Yes (Other)
  Sender: FDA-Public Use
  Company Number: BR-NOVARTISPH-NVSC2021BR232908

PATIENT
  Sex: Male

DRUGS (14)
  1. COSENTYX [Suspect]
     Active Substance: SECUKINUMAB
     Indication: Ankylosing spondylitis
     Dosage: UNK UNK, QW
     Route: 065
     Dates: start: 20210804
  2. COSENTYX [Suspect]
     Active Substance: SECUKINUMAB
     Indication: Psoriasis
     Dosage: UNK UNK, QMO
     Route: 065
     Dates: start: 20210809
  3. COSENTYX [Suspect]
     Active Substance: SECUKINUMAB
     Dosage: 150 MG, QMO, ATTACK DOSES
     Route: 065
     Dates: start: 20210906
  4. COSENTYX [Suspect]
     Active Substance: SECUKINUMAB
     Dosage: UNK, QMO
     Route: 065
  5. COSENTYX [Suspect]
     Active Substance: SECUKINUMAB
     Dosage: 150 MG
     Route: 065
  6. COSENTYX [Suspect]
     Active Substance: SECUKINUMAB
     Dosage: 150 MG
     Route: 065
     Dates: start: 20211105
  7. COSENTYX [Suspect]
     Active Substance: SECUKINUMAB
     Dosage: UNK
     Route: 065
     Dates: start: 20211205
  8. COSENTYX [Suspect]
     Active Substance: SECUKINUMAB
     Dosage: 150 MG, UNKNOWN
     Route: 065
  9. LOSARTAN POTASSIUM [Suspect]
     Active Substance: LOSARTAN POTASSIUM
     Indication: Blood pressure abnormal
     Dosage: UNK
     Route: 065
  10. XARELTO [Suspect]
     Active Substance: RIVAROXABAN
     Indication: Anticoagulant therapy
     Dosage: 20
     Route: 065
  11. METHOTREXATE [Concomitant]
     Active Substance: METHOTREXATE
     Indication: Product used for unknown indication
     Dosage: 2.5 MG
     Route: 065
  12. HYDROCHLOROTHIAZIDE [Concomitant]
     Active Substance: HYDROCHLOROTHIAZIDE
     Indication: Diuretic therapy
     Dosage: UNK
     Route: 065
  13. LEVOTHYROXINE [Concomitant]
     Active Substance: LEVOTHYROXINE
     Indication: Thyroid disorder
     Dosage: UNK
     Route: 065
  14. BEFOLIK [Concomitant]
     Indication: Product used for unknown indication
     Dosage: UNK, UNKNOWN
     Route: 065

REACTIONS (22)
  - Retinal haemorrhage [Unknown]
  - Central vision loss [Unknown]
  - Ocular hyperaemia [Not Recovered/Not Resolved]
  - Rheumatic disorder [Recovering/Resolving]
  - Mobility decreased [Recovered/Resolved]
  - Gait inability [Recovering/Resolving]
  - Parosmia [Unknown]
  - Arthralgia [Not Recovered/Not Resolved]
  - Discomfort [Unknown]
  - Arthritis [Not Recovered/Not Resolved]
  - Pain [Not Recovered/Not Resolved]
  - Gingivitis [Unknown]
  - Implant site erosion [Unknown]
  - Gingival disorder [Unknown]
  - Gingival swelling [Unknown]
  - Pulpitis dental [Unknown]
  - Infection [Recovered/Resolved]
  - Odynophagia [Unknown]
  - Impaired healing [Unknown]
  - Drug ineffective [Unknown]
  - Therapeutic product effect incomplete [Recovering/Resolving]
  - Therapeutic product effect delayed [Unknown]

NARRATIVE: CASE EVENT DATE: 20210101
